FAERS Safety Report 4966650-9 (Version None)
Quarter: 2006Q2

REPORT INFORMATION
  Report Type: 
  Country: None (occurrence: None)
  Receive Date: 20060407
  Receipt Date: 20060330
  Transmission Date: 20061013
  Serious: Yes (Hospitalization)
  Sender: FDA-Public Use
  Company Number: US-ABBOTT-06P-163-0329478-00

PATIENT
  Sex: Female
  Weight: 66.738 kg

DRUGS (2)
  1. DEPAKOTE [Suspect]
     Indication: CONVULSION
     Route: 048
     Dates: start: 19950101, end: 19950101
  2. PHENYTOIN SODIUM [Concomitant]
     Indication: CONVULSION
     Route: 048
     Dates: start: 19950101

REACTIONS (3)
  - CHILLS [None]
  - NIGHT SWEATS [None]
  - PYREXIA [None]
